FAERS Safety Report 15613607 (Version 2)
Quarter: 2019Q1

REPORT INFORMATION
  Report Type: Spontaneous
  Country: US (occurrence: US)
  Receive Date: 20181113
  Receipt Date: 20190125
  Transmission Date: 20190417
  Serious: Yes (Other)
  Sender: FDA-Public Use
  Company Number: US-PFIZER INC-2018452074

PATIENT
  Age: 85 Year
  Sex: Female
  Weight: 54 kg

DRUGS (2)
  1. PREMARIN [Suspect]
     Active Substance: ESTROGENS, CONJUGATED
     Indication: HORMONE REPLACEMENT THERAPY
     Dosage: 1.25 MG, UNK
  2. PREMARIN [Suspect]
     Active Substance: ESTROGENS, CONJUGATED
     Dosage: 0.3 MG, 1X/DAY, (MORNING AFTER BREAKFAST)
     Route: 048

REACTIONS (6)
  - Hot flush [Recovered/Resolved]
  - Gastrointestinal disorder [Recovering/Resolving]
  - Blood pressure increased [Unknown]
  - Night sweats [Recovered/Resolved]
  - Headache [Recovered/Resolved]
  - Tremor [Unknown]

NARRATIVE: CASE EVENT DATE: 201712
